FAERS Safety Report 7002726-2 (Version None)
Quarter: 2010Q3

REPORT INFORMATION
  Report Type: 
  Country: None (occurrence: None)
  Receive Date: 20100920
  Receipt Date: 20071203
  Transmission Date: 20110219
  Serious: Yes (Other)
  Sender: FDA-Public Use
  Company Number: US-ASTRAZENECA-2006UW23237

PATIENT
  Age: 17403 Day
  Sex: Female

DRUGS (10)
  1. SEROQUEL [Suspect]
     Indication: SCHIZOPHRENIA
     Dosage: 25-100 MG
     Route: 048
     Dates: start: 20010301
  2. SEROQUEL [Suspect]
     Indication: STRESS
     Dosage: 25-100 MG
     Route: 048
     Dates: start: 20010301
  3. SEROQUEL [Suspect]
     Indication: BIPOLAR DISORDER
     Dosage: 25-100 MG
     Route: 048
     Dates: start: 20010301
  4. SEROQUEL [Suspect]
     Route: 048
     Dates: start: 20020101, end: 20040101
  5. SEROQUEL [Suspect]
     Route: 048
     Dates: start: 20020101, end: 20040101
  6. SEROQUEL [Suspect]
     Route: 048
     Dates: start: 20020101, end: 20040101
  7. CELEXA [Concomitant]
     Indication: DEPRESSION
     Dates: start: 19980101
  8. SERZONE [Concomitant]
     Dosage: 50, 400 MG
     Dates: start: 19980101
  9. HYDROXYZINE [Concomitant]
     Route: 048
     Dates: start: 20010220
  10. VISTARIL [Concomitant]
     Dosage: 25-100MG
     Dates: start: 20010606

REACTIONS (1)
  - PANCREATITIS [None]
